FAERS Safety Report 9522232 (Version 1)
Quarter: 2013Q3

REPORT INFORMATION
  Report Type: Spontaneous
  Country: US (occurrence: US)
  Receive Date: 20130913
  Receipt Date: 20130913
  Transmission Date: 20140515
  Serious: No
  Sender: FDA-Public Use
  Company Number: US-009507513-1309USA001917

PATIENT
  Sex: Female

DRUGS (1)
  1. PROVENTIL [Suspect]
     Dosage: 90 MCG/ TWO PUFFS EVERY FOUR HOURS
     Route: 055

REACTIONS (3)
  - Incorrect dose administered by device [Unknown]
  - Product distribution issue [Unknown]
  - No adverse event [Unknown]
